FAERS Safety Report 8788885 (Version 2)
Quarter: 2013Q4

REPORT INFORMATION
  Report Type: Spontaneous
  Country: US (occurrence: US)
  Receive Date: 20120915
  Receipt Date: 20131101
  Transmission Date: 20140711
  Serious: No
  Sender: FDA-Public Use
  Company Number: US-009507513-1209USA005224

PATIENT
  Sex: Female

DRUGS (3)
  1. VICTRELIS [Suspect]
     Indication: HEPATITIS C
     Dosage: 800 MG, TID
     Route: 048
     Dates: start: 20120725
  2. PEGASYS [Concomitant]
     Indication: HEPATITIS C
  3. RIBASPHERE [Concomitant]
     Indication: HEPATITIS C

REACTIONS (3)
  - Weight decreased [Unknown]
  - Fatigue [Unknown]
  - Nausea [Unknown]
